FAERS Safety Report 9678570 (Version 3)
Quarter: 2013Q4

REPORT INFORMATION
  Report Type: Spontaneous
  Country: JP (occurrence: JP)
  Receive Date: 20131108
  Receipt Date: 20131227
  Transmission Date: 20140711
  Serious: Yes (Death, Hospitalization, Other)
  Sender: FDA-Public Use
  Company Number: JP-BAYER-2013-134096

PATIENT
  Age: 68 Year
  Sex: Male
  Weight: 57 kg

DRUGS (6)
  1. STIVARGA [Suspect]
     Indication: COLORECTAL CANCER
     Dosage: 160 MG, QD
     Route: 048
     Dates: start: 20130705, end: 20130718
  2. STIVARGA [Suspect]
     Indication: COLORECTAL CANCER
     Dosage: 120 MG, QD
     Route: 048
     Dates: start: 20130719, end: 20131007
  3. DIOVAN [Concomitant]
     Dosage: DAILY DOSE 80 MG
     Route: 048
     Dates: end: 20131203
  4. ADALAT CR [Concomitant]
     Dosage: DAILY DOSE 10 MG
     Route: 048
     Dates: end: 20131203
  5. GLUCOBAY OD [Concomitant]
     Dosage: DAILY DOSE 100 MG
     Route: 048
     Dates: end: 20131203
  6. URSO [Concomitant]
     Dosage: DAILY DOSE 100 MG
     Route: 048
     Dates: end: 20131203

REACTIONS (8)
  - Fatigue [Recovering/Resolving]
  - Pyrexia [Recovering/Resolving]
  - Interstitial lung disease [Not Recovered/Not Resolved]
  - Multi-organ failure [Fatal]
  - Fatigue [Recovering/Resolving]
  - Ascites [Recovering/Resolving]
  - Fatigue [Recovering/Resolving]
  - Colon cancer metastatic [Fatal]
